FAERS Safety Report 24840338 (Version 1)
Quarter: 2025Q1

REPORT INFORMATION
  Report Type: Spontaneous
  Country: CN (occurrence: CN)
  Receive Date: 20250114
  Receipt Date: 20250114
  Transmission Date: 20250408
  Serious: Yes (Hospitalization, Other)
  Sender: ROCHE
  Company Number: CN-ROCHE-10000176067

PATIENT
  Age: 39 Year
  Weight: 70 kg

DRUGS (3)
  1. ADO-TRASTUZUMAB EMTANSINE [Suspect]
     Active Substance: ADO-TRASTUZUMAB EMTANSINE
     Indication: Breast cancer
     Dosage: 200MG D1 Q21D
     Route: 042
     Dates: start: 20241129, end: 20241129
  2. HERBALS [Concomitant]
     Active Substance: HERBALS
     Route: 048
  3. FERRIC POLYSACCHARIDE COMPLEX [Concomitant]
     Active Substance: FERRIC POLYSACCHARIDE COMPLEX
     Route: 048

REACTIONS (2)
  - Myelosuppression [Unknown]
  - Anaemia [Unknown]

NARRATIVE: CASE EVENT DATE: 20241219
